FAERS Safety Report 6844989-X (Version None)
Quarter: 2010Q3

REPORT INFORMATION
  Report Type: 
  Country: None (occurrence: None)
  Receive Date: 20100715
  Receipt Date: 20100713
  Transmission Date: 20110219
  Serious: Yes (Hospitalization)
  Sender: FDA-Public Use
  Company Number: US-GILEAD-2010-0030399

PATIENT
  Sex: Female
  Weight: 75.7 kg

DRUGS (9)
  1. LETAIRIS [Suspect]
     Indication: PULMONARY ARTERIAL HYPERTENSION
     Route: 048
     Dates: start: 20080607
  2. REVATIO [Concomitant]
  3. REMODULIN [Concomitant]
  4. PREDNISONE [Concomitant]
  5. COUMADIN [Concomitant]
  6. ACTONEL [Concomitant]
  7. KLOR-CON [Concomitant]
  8. NAPHCON [Concomitant]
  9. OMEPRAZOLE [Concomitant]

REACTIONS (1)
  - DEVICE RELATED INFECTION [None]
